FAERS Safety Report 17510637 (Version 2)
Quarter: 2020Q1

REPORT INFORMATION
  Report Type: Spontaneous
  Country: NL (occurrence: NL)
  Receive Date: 20200306
  Receipt Date: 20200319
  Transmission Date: 20200409
  Serious: Yes (Other)
  Sender: FDA-Public Use
  Company Number: NL-PFIZER INC-2020097286

PATIENT
  Age: 63 Year
  Sex: Female
  Weight: 64 kg

DRUGS (4)
  1. LETROZOL [Concomitant]
     Active Substance: LETROZOLE
     Indication: BREAST CANCER METASTATIC
     Dosage: 2.5 MG, 1X/DAY
     Dates: start: 201609
  2. PERTUZUMAB. [Concomitant]
     Active Substance: PERTUZUMAB
     Indication: BREAST CANCER METASTATIC
     Dosage: 420 MG, 1X/3 WEEKS
     Dates: start: 201604
  3. PAMIDRONIC ACID [Concomitant]
     Active Substance: PAMIDRONIC ACID
     Indication: OSTEOPOROSIS
     Dosage: 90 MG, 1X/6 WEEKS
     Dates: start: 2016
  4. TRAZIMERA [Suspect]
     Active Substance: TRASTUZUMAB-QYYP
     Indication: BREAST CANCER METASTATIC
     Dosage: 378 MG, 1X/3 WEEKS
     Route: 042
     Dates: start: 20200211

REACTIONS (4)
  - Neuropathy peripheral [Not Recovered/Not Resolved]
  - Nail disorder [Not Recovered/Not Resolved]
  - Condition aggravated [Not Recovered/Not Resolved]
  - Peripheral swelling [Not Recovered/Not Resolved]

NARRATIVE: CASE EVENT DATE: 202003
